FAERS Safety Report 21762857 (Version 1)
Quarter: 2022Q4

REPORT INFORMATION
  Report Type: Spontaneous
  Country: US (occurrence: None)
  Receive Date: 20221220
  Receipt Date: 20221220
  Transmission Date: 20230113
  Serious: Yes (Hospitalization)
  Sender: FDA-Public Use
  Company Number: None

PATIENT
  Age: 61 Year
  Sex: Female

DRUGS (1)
  1. DIMETHYL FUMARATE [Suspect]
     Active Substance: DIMETHYL FUMARATE
     Dosage: 240MG  BID ORAL?
     Route: 048
     Dates: start: 202210

REACTIONS (3)
  - Influenza [None]
  - Asthma [None]
  - Multiple sclerosis [None]

NARRATIVE: CASE EVENT DATE: 20221220
